FAERS Safety Report 6699519-2 (Version None)
Quarter: 2010Q2

REPORT INFORMATION
  Report Type: 
  Country: None (occurrence: None)
  Receive Date: 20100427
  Receipt Date: 20100427
  Transmission Date: 20101027
  Serious: Yes (Hospitalization)
  Sender: FDA-Public Use
  Company Number: None

PATIENT
  Age: 50 Year
  Sex: Female
  Weight: 108 kg

DRUGS (2)
  1. SULFAMETHOXAZOLE AND TRIMETHOPRIM [Suspect]
     Indication: ANGIOEDEMA
     Dosage: 800/160 MG EVERY DAY PO
     Route: 048
     Dates: start: 20100325, end: 20100331
  2. LISINOPRIL AND HYDROCHLOROTHIAZIDE [Suspect]
     Indication: ANGIOEDEMA
     Dosage: 12.5/10 MG EVERY DAY PO
     Route: 048
     Dates: start: 20100129, end: 20100401

REACTIONS (1)
  - ANGIOEDEMA [None]
